FAERS Safety Report 9527678 (Version 1)
Quarter: 2013Q1

REPORT INFORMATION
  Report Type: Spontaneous
  Country: US (occurrence: None)
  Receive Date: 20130314
  Receipt Date: 20130314
  Transmission Date: 20140127
  Serious: No
  Sender: FDA-Public Use
  Company Number: 1212USA002958

PATIENT
  Age: 56 Year
  Sex: Female

DRUGS (3)
  1. VICTRELIS [Suspect]
     Indication: HEPATITIS C
     Dosage: UNK, TID, ORAL
     Route: 048
     Dates: start: 20120628
  2. RIBAPAK (RIBAVIRIN) [Concomitant]
  3. PEGASYA (PEGINTERFERON ALFA-2A) [Concomitant]

REACTIONS (2)
  - Pruritus generalised [None]
  - Muscular weakness [None]
